FAERS Safety Report 4413975-1 (Version None)
Quarter: 2004Q3

REPORT INFORMATION
  Report Type: 
  Country: None (occurrence: None)
  Receive Date: 20040728
  Receipt Date: 20040714
  Transmission Date: 20050211
  Serious: Yes (Life-Threatening)
  Sender: FDA-Public Use
  Company Number: S04-GER-03130-01

PATIENT
  Age: 35 Year
  Sex: Male

DRUGS (2)
  1. CIPRALEX    (ESCITALOPRAM) [Suspect]
     Indication: DEPRESSION
     Dosage: 10 MG QD PO
     Route: 048
     Dates: start: 20040630, end: 20040701
  2. REMERGIL (MIRTAZAPINE) [Concomitant]

REACTIONS (4)
  - MORBID THOUGHTS [None]
  - NERVOUSNESS [None]
  - OBSESSIVE THOUGHTS [None]
  - SUICIDAL IDEATION [None]
